FAERS Safety Report 21458481 (Version 6)
Quarter: 2024Q2

REPORT INFORMATION
  Report Type: Spontaneous
  Country: AR (occurrence: AR)
  Receive Date: 20221014
  Receipt Date: 20240405
  Transmission Date: 20240716
  Serious: No
  Sender: FDA-Public Use
  Company Number: AR-PFIZER INC-PV202200068139

PATIENT
  Age: 5 Year
  Sex: Male

DRUGS (3)
  1. GENOTROPIN [Suspect]
     Active Substance: SOMATROPIN
     Indication: Growth hormone deficiency
     Dosage: 0.1 MG A 0.5 MG, 6X/WEEK
     Dates: start: 20220627
  2. GENOTROPIN [Suspect]
     Active Substance: SOMATROPIN
     Dosage: 0.1 MG A 0.5 MG, 6X/WEEK
     Dates: start: 20220627
  3. GENOTROPIN [Suspect]
     Active Substance: SOMATROPIN
     Dosage: UNK

REACTIONS (7)
  - Incorrect dose administered by device [Unknown]
  - Poor quality device used [Unknown]
  - Needle issue [Not Recovered/Not Resolved]
  - Device mechanical issue [Unknown]
  - Device malfunction [Unknown]
  - Device breakage [Unknown]
  - Drug dose omission by device [Unknown]
